FAERS Safety Report 13558052 (Version 1)
Quarter: 2017Q2

REPORT INFORMATION
  Report Type: Spontaneous
  Country: US (occurrence: US)
  Receive Date: 20170517
  Receipt Date: 20170517
  Transmission Date: 20170830
  Serious: No
  Sender: FDA-Public Use
  Company Number: None

PATIENT
  Age: 59 Year
  Sex: Male

DRUGS (1)
  1. SUCCINYLCHOLINE [Suspect]
     Active Substance: SUCCINYLCHOLINE
     Dates: start: 20170508

REACTIONS (2)
  - Pseudocholinesterase deficiency [None]
  - Respiratory distress [None]

NARRATIVE: CASE EVENT DATE: 20170508
